FAERS Safety Report 22685239 (Version 3)
Quarter: 2023Q4

REPORT INFORMATION
  Report Type: Report from Study
  Country: US (occurrence: None)
  Receive Date: 20230710
  Receipt Date: 20231002
  Transmission Date: 20240110
  Serious: Yes (Death, Hospitalization)
  Sender: FDA-Public Use
  Company Number: US-ROCHE-3384028

PATIENT
  Age: 80 Year
  Sex: Male
  Weight: 127.6 kg

DRUGS (5)
  1. RITUXIMAB [Suspect]
     Active Substance: RITUXIMAB
     Indication: Chronic lymphocytic leukaemia
     Route: 041
     Dates: start: 20221221, end: 20230313
  2. PIRTOBRUTINIB [Suspect]
     Active Substance: PIRTOBRUTINIB
     Indication: Chronic lymphocytic leukaemia
     Route: 048
     Dates: start: 20230405, end: 20230613
  3. IDELALISIB [Suspect]
     Active Substance: IDELALISIB
     Indication: Chronic lymphocytic leukaemia
     Route: 048
     Dates: start: 20221221, end: 20230313
  4. ALLOPURINOL [Concomitant]
     Active Substance: ALLOPURINOL
  5. LASIX [Concomitant]
     Active Substance: FUROSEMIDE
     Dates: start: 20230619

REACTIONS (2)
  - Acute kidney injury [Fatal]
  - Disease progression [Fatal]

NARRATIVE: CASE EVENT DATE: 20230613
